FAERS Safety Report 16707397 (Version 1)
Quarter: 2019Q4

REPORT INFORMATION
  Report Type: Spontaneous
  Country: US (occurrence: US)
  Receive Date: 20190814
  Receipt Date: 20190814
  Transmission Date: 20200122
  Serious: Yes (Disabling)
  Sender: FDA-Public Use
  Company Number: None

PATIENT
  Age: 43 Year
  Sex: Female
  Weight: 68.04 kg

DRUGS (1)
  1. PARAGARD T 380A [Suspect]
     Active Substance: COPPER

REACTIONS (23)
  - Weight increased [None]
  - Arthralgia [None]
  - Blood iron decreased [None]
  - Vitamin D decreased [None]
  - Abdominal distension [None]
  - Amnesia [None]
  - Menorrhagia [None]
  - Alopecia [None]
  - Muscle spasms [None]
  - Dyspnoea [None]
  - Feeling cold [None]
  - Dysgeusia [None]
  - Ill-defined disorder [None]
  - Crying [None]
  - Fatigue [None]
  - Constipation [None]
  - Back pain [None]
  - Abdominal pain lower [None]
  - Vertigo [None]
  - Depression [None]
  - Metal poisoning [None]
  - Anxiety [None]
  - Nausea [None]
